FAERS Safety Report 11231061 (Version 1)
Quarter: 2015Q3

REPORT INFORMATION
  Report Type: Spontaneous
  Country: CA (occurrence: CA)
  Receive Date: 20150701
  Receipt Date: 20150701
  Transmission Date: 20151125
  Serious: Yes (Hospitalization, Other)
  Sender: FDA-Public Use
  Company Number: CA-ACTAVIS-2015-12627

PATIENT
  Age: 24 Year
  Sex: Female

DRUGS (1)
  1. NEXT CHOICE [Suspect]
     Active Substance: LEVONORGESTREL
     Indication: CONTRACEPTION
     Dosage: 2 TABLETS, AS DIRECTED
     Route: 048
     Dates: start: 20150526

REACTIONS (4)
  - Drug ineffective [Recovering/Resolving]
  - Rash [Recovered/Resolved]
  - Hypersensitivity [Recovered/Resolved]
  - Ectopic pregnancy [Recovering/Resolving]

NARRATIVE: CASE EVENT DATE: 20150526
